FAERS Safety Report 8362835-2 (Version None)
Quarter: 2012Q2

REPORT INFORMATION
  Report Type: 
  Country: None (occurrence: None)
  Receive Date: 20120516
  Receipt Date: 20120514
  Transmission Date: 20120825
  Serious: Yes (Death)
  Sender: FDA-Public Use
  Company Number: PHEH2012US010060

PATIENT
  Sex: Male

DRUGS (6)
  1. PROTONIX [Concomitant]
  2. ZOMETA [Suspect]
     Dosage: UNK UKN, UNK
  3. ZOLOFT [Concomitant]
  4. OXYCODONE HCL [Concomitant]
  5. CALCIUM [Concomitant]
  6. PREDNISONE [Concomitant]

REACTIONS (1)
  - DEATH [None]
